FAERS Safety Report 15748418 (Version 1)
Quarter: 2018Q4

REPORT INFORMATION
  Report Type: Spontaneous
  Country: CA (occurrence: CA)
  Receive Date: 20181221
  Receipt Date: 20181221
  Transmission Date: 20190205
  Serious: Yes (Other)
  Sender: FDA-Public Use
  Company Number: CA-ORION CORPORATION ORION PHARMA-TREX2018-3808

PATIENT
  Age: 61 Year
  Sex: Female

DRUGS (4)
  1. HUMIRA [Suspect]
     Active Substance: ADALIMUMAB
     Indication: PRODUCT USED FOR UNKNOWN INDICATION
     Route: 058
  2. ORENCIA [Suspect]
     Active Substance: ABATACEPT
     Indication: PRODUCT USED FOR UNKNOWN INDICATION
     Route: 058
  3. ENBREL [Suspect]
     Active Substance: ETANERCEPT
     Indication: PRODUCT USED FOR UNKNOWN INDICATION
     Route: 065
  4. METHOTREXATE (TRADE NAME UNKNOWN) [Suspect]
     Active Substance: METHOTREXATE
     Indication: PRODUCT USED FOR UNKNOWN INDICATION
     Route: 065

REACTIONS (9)
  - Drug effect incomplete [Recovered/Resolved with Sequelae]
  - Adverse drug reaction [Recovered/Resolved with Sequelae]
  - Demyelination [Recovered/Resolved with Sequelae]
  - Rheumatoid arthritis [Recovered/Resolved with Sequelae]
  - Nodule [Recovered/Resolved with Sequelae]
  - Alopecia [Recovered/Resolved with Sequelae]
  - Localised infection [Recovered/Resolved with Sequelae]
  - Sciatica [Recovered/Resolved with Sequelae]
  - Psoriasis [Recovered/Resolved with Sequelae]
